FAERS Safety Report 5092200-5 (Version None)
Quarter: 2006Q3

REPORT INFORMATION
  Report Type: 
  Country: None (occurrence: None)
  Receive Date: 20060824
  Receipt Date: 20060817
  Transmission Date: 20061208
  Serious: Yes (Other)
  Sender: FDA-Public Use
  Company Number: 2006100212

PATIENT
  Age: 62 Year
  Sex: Female
  Weight: 73.9363 kg

DRUGS (6)
  1. BENADRYL [Suspect]
     Indication: PRURITUS
     Dosage: 2 TABLETS ONCE, ORAL
     Route: 048
     Dates: start: 20060709, end: 20060709
  2. MELATONIN (MELATONIN) [Suspect]
     Indication: INSOMNIA
     Dosage: 1 TABLET DAILY, AS NEEDED, ORAL
     Route: 048
     Dates: start: 20060201
  3. MULTIVITAMINS (ASCORBIC ACID, ERGOCALCIFEROL, FOLIC ACID, NICOTINAMIDE [Concomitant]
  4. DRUG, UNSPECIFIED (DRUG, UNSPECIFIED) [Concomitant]
  5. TOCOPHEROL (TOCOPHEROL) [Concomitant]
  6. ASCORBIC ACID [Concomitant]

REACTIONS (3)
  - HALLUCINATION [None]
  - HYPERSOMNIA [None]
  - MALAISE [None]
